FAERS Safety Report 10784598 (Version 3)
Quarter: 2015Q2

REPORT INFORMATION
  Report Type: Spontaneous
  Country: JP (occurrence: JP)
  Receive Date: 20150211
  Receipt Date: 20150424
  Transmission Date: 20150821
  Serious: Yes (Hospitalization, Other)
  Sender: FDA-Public Use
  Company Number: JP-OTSUKA-JP-2015-10624

PATIENT

DRUGS (11)
  1. BUSULFEX [Suspect]
     Active Substance: BUSULFAN
     Dosage: 165 MG MILLIGRAM(S), DAILY DOSE
     Route: 041
     Dates: start: 20141210, end: 20141210
  2. BUSULFEX [Suspect]
     Active Substance: BUSULFAN
     Dosage: 188 MG MILLIGRAM(S), DAILY DOSE
     Route: 041
     Dates: start: 20141213, end: 20141213
  3. BUSULFEX [Suspect]
     Active Substance: BUSULFAN
     Dosage: 220 MG MILLIGRAM(S), DAILY DOSE
     Route: 041
     Dates: start: 20141211, end: 20141211
  4. UROMITEXAN [Concomitant]
     Active Substance: MESNA
     Indication: PRODUCT USED FOR UNKNOWN INDICATION
     Dosage: 4800 MG MILLIGRAM(S), UNK
     Route: 041
     Dates: start: 20141215, end: 20141216
  5. BUSULFEX [Suspect]
     Active Substance: BUSULFAN
     Indication: BONE MARROW CONDITIONING REGIMEN
     Dosage: 43 MG MILLIGRAM(S), DAILY DOSE
     Route: 041
     Dates: start: 20141203, end: 20141203
  6. BUSULFEX [Suspect]
     Active Substance: BUSULFAN
     Dosage: 196 MG MILLIGRAM(S), DAILY DOSE
     Route: 041
     Dates: start: 20141212, end: 20141212
  7. CYCLOPHOSPHAMIDE. [Suspect]
     Active Substance: CYCLOPHOSPHAMIDE
     Indication: PRODUCT USED FOR UNKNOWN INDICATION
     Dosage: 3210 MG MILLIGRAM(S), UNK
     Route: 041
     Dates: start: 20141215, end: 20141216
  8. GRANISETRON HYDROCHLORIDE. [Concomitant]
     Active Substance: GRANISETRON HYDROCHLORIDE
     Indication: PRODUCT USED FOR UNKNOWN INDICATION
     Dosage: 3 MG MILLIGRAM(S), DAILY DOSE
     Route: 041
     Dates: start: 20141203, end: 20141203
  9. GRANISETRON HYDROCHLORIDE. [Concomitant]
     Active Substance: GRANISETRON HYDROCHLORIDE
     Dosage: 12 MG MILLIGRAM(S), DAILY DOSE
     Route: 041
     Dates: start: 20141210, end: 20141214
  10. BUSULFEX [Suspect]
     Active Substance: BUSULFAN
     Dosage: 47 MG MILLIGRAM(S), DAILY DOSE
     Route: 041
     Dates: start: 20141214, end: 20141214
  11. DEPAKENE [Concomitant]
     Active Substance: VALPROIC ACID
     Indication: PRODUCT USED FOR UNKNOWN INDICATION
     Dosage: 800 MG MILLIGRAM(S), DAILY DOSE
     Route: 048
     Dates: start: 20141209, end: 20141215

REACTIONS (2)
  - Skin exfoliation [Recovered/Resolved]
  - Pancytopenia [Unknown]

NARRATIVE: CASE EVENT DATE: 20150103
